FAERS Safety Report 6687865-8 (Version None)
Quarter: 2010Q2

REPORT INFORMATION
  Report Type: 
  Country: None (occurrence: None)
  Receive Date: 20100409
  Receipt Date: 20100107
  Transmission Date: 20101027
  Serious: Yes (Other)
  Sender: FDA-Public Use
  Company Number: AE  2010-003

PATIENT
  Age: 38 Year
  Sex: Female

DRUGS (1)
  1. FAZACLO ODT [Suspect]
     Dosage: 150MG DAILY PO
     Route: 048
     Dates: start: 20090326, end: 20100106

REACTIONS (1)
  - AGRANULOCYTOSIS [None]
